FAERS Safety Report 8932462 (Version 2)
Quarter: 2012Q4

REPORT INFORMATION
  Report Type: Report from Study
  Country: US (occurrence: US)
  Receive Date: 20121128
  Receipt Date: 20121228
  Transmission Date: 20130627
  Serious: Yes (Death, Life-Threatening, Other)
  Sender: FDA-Public Use
  Company Number: US-ROCHE-1158198

PATIENT
  Age: 55 Year
  Sex: Female
  Weight: 111.68 kg

DRUGS (5)
  1. CAPECITABINE [Suspect]
     Indication: BREAST CANCER
     Dosage: 1500 mg in morning, 2000 mg in evening
     Route: 065
     Dates: start: 20070403, end: 20070416
  2. BEVACIZUMAB [Suspect]
     Indication: BREAST CANCER
     Route: 065
  3. FLAGYL [Concomitant]
     Route: 048
  4. ATIVAN [Concomitant]
     Route: 065
  5. KYTRIL [Concomitant]

REACTIONS (4)
  - Sepsis [Fatal]
  - Pneumonia [Unknown]
  - Diarrhoea [Unknown]
  - Dyspnoea [Unknown]
